FAERS Safety Report 7382549-5 (Version None)
Quarter: 2011Q1

REPORT INFORMATION
  Report Type: 
  Country: None (occurrence: None)
  Receive Date: 20110329
  Receipt Date: 20110323
  Transmission Date: 20110831
  Serious: Yes (Other)
  Sender: FDA-Public Use
  Company Number: US-BAYER-2011-026502

PATIENT
  Sex: Female
  Weight: 54 kg

DRUGS (1)
  1. ALEVE (CAPLET) [Suspect]
     Indication: ARTHRALGIA
     Dosage: 1 DF, ONCE
     Route: 048
     Dates: start: 20110322, end: 20110322

REACTIONS (9)
  - DELUSION [None]
  - DRY SKIN [None]
  - SKIN EXFOLIATION [None]
  - PRURITUS GENERALISED [None]
  - HYPERSENSITIVITY [None]
  - TREMOR [None]
  - CONFUSIONAL STATE [None]
  - RASH ERYTHEMATOUS [None]
  - BURNING SENSATION [None]
